FAERS Safety Report 18164274 (Version 4)
Quarter: 2023Q2

REPORT INFORMATION
  Report Type: Spontaneous
  Country: ES (occurrence: ES)
  Receive Date: 20200818
  Receipt Date: 20230426
  Transmission Date: 20230721
  Serious: Yes (Other)
  Sender: FDA-Public Use
  Company Number: ES-UCBSA-2020030201

PATIENT
  Sex: Female

DRUGS (1)
  1. LEVETIRACETAM [Suspect]
     Active Substance: LEVETIRACETAM
     Indication: Epilepsy
     Dosage: UNK
     Route: 065

REACTIONS (4)
  - Premature separation of placenta [Unknown]
  - Seizure [Unknown]
  - Maternal exposure before pregnancy [Unknown]
  - Maternal exposure during pregnancy [Unknown]
